FAERS Safety Report 5881455-2 (Version None)
Quarter: 2008Q3

REPORT INFORMATION
  Report Type: 
  Country: None (occurrence: None)
  Receive Date: 20080912
  Receipt Date: 20080731
  Transmission Date: 20090109
  Serious: No
  Sender: FDA-Public Use
  Company Number: US-ABBOTT-08P-163-0460383-00

PATIENT
  Sex: Female
  Weight: 77.18 kg

DRUGS (11)
  1. HUMIRA [Suspect]
     Indication: RHEUMATOID ARTHRITIS
     Route: 058
     Dates: start: 20080201
  2. HUMIRA [Suspect]
     Indication: ANKYLOSING SPONDYLITIS
  3. ROSUVASTATIN [Concomitant]
     Indication: DRUG USE FOR UNKNOWN INDICATION
     Route: 048
  4. METHOTREXATE [Concomitant]
     Indication: RHEUMATOID ARTHRITIS
     Dosage: 2.5MILLIGRAMS 6 PILLS A WEEK-FRIDAY
     Route: 048
  5. METHOTREXATE [Concomitant]
     Indication: ANKYLOSING SPONDYLITIS
  6. FOLIC ACID [Concomitant]
     Indication: VITAMIN SUPPLEMENTATION
     Route: 048
  7. GLUCOSAMINE [Concomitant]
     Indication: ARTHROPATHY
     Route: 048
  8. ONE A DAY [Concomitant]
     Indication: VITAMIN SUPPLEMENTATION
     Route: 048
  9. CORTISONE [Concomitant]
     Indication: INFLAMMATION
     Dosage: 1 SHOT TO EACH KNEE
     Route: 050
     Dates: start: 20080703, end: 20080703
  10. TRAMADOL HCL [Concomitant]
     Indication: PAIN
     Route: 048
  11. CELECOXIB [Concomitant]
     Indication: PAIN
     Route: 048

REACTIONS (5)
  - ASTHENIA [None]
  - DIARRHOEA [None]
  - FEELING ABNORMAL [None]
  - IMMUNE SYSTEM DISORDER [None]
  - PAIN [None]
